FAERS Safety Report 16657894 (Version 1)
Quarter: 2019Q3

REPORT INFORMATION
  Report Type: Spontaneous
  Country: SI (occurrence: SI)
  Receive Date: 20190801
  Receipt Date: 20190801
  Transmission Date: 20191004
  Serious: Yes (Other)
  Sender: FDA-Public Use
  Company Number: SI-AMGEN-SVNSP2019121554

PATIENT
  Age: 68 Year
  Sex: Female

DRUGS (5)
  1. ENBREL [Suspect]
     Active Substance: ETANERCEPT
     Indication: RHEUMATOID ARTHRITIS
     Dosage: UNK
     Route: 065
  2. PROLIA [Suspect]
     Active Substance: DENOSUMAB
     Indication: PRODUCT USED FOR UNKNOWN INDICATION
     Dosage: UNK
     Route: 065
     Dates: start: 2018
  3. METHOTREXATE. [Concomitant]
     Active Substance: METHOTREXATE
     Indication: RHEUMATOID ARTHRITIS
     Dosage: UNK
  4. PRENESSA [Concomitant]
     Active Substance: PERINDOPRIL
     Indication: HYPERTENSION
     Dosage: UNK
  5. PLIVIT D3 [Concomitant]
     Active Substance: CHOLECALCIFEROL
     Indication: HYPERTENSION
     Dosage: UNK

REACTIONS (3)
  - Lung adenocarcinoma [Recovered/Resolved]
  - Osteoporotic fracture [Unknown]
  - Spinal fracture [Unknown]
